FAERS Safety Report 11932751 (Version 1)
Quarter: 2016Q1

REPORT INFORMATION
  Report Type: Spontaneous
  Country: IN (occurrence: IN)
  Receive Date: 20160120
  Receipt Date: 20160120
  Transmission Date: 20160526
  Serious: Yes (Hospitalization, Other)
  Sender: FDA-Public Use
  Company Number: PHHY2016IN004968

PATIENT
  Age: 65 Year
  Sex: Female
  Weight: 73 kg

DRUGS (1)
  1. BETAMETHASONE. [Suspect]
     Active Substance: BETAMETHASONE
     Indication: DYSPNOEA
     Dosage: 0.5 MG, BID
     Route: 065

REACTIONS (7)
  - Hypothyroidism [Unknown]
  - Hypertension [Unknown]
  - Self-medication [Unknown]
  - Lymphopenia [Unknown]
  - Cushing^s syndrome [Unknown]
  - Osteopenia [Unknown]
  - Hypothalamic pituitary adrenal axis suppression [Unknown]
